FAERS Safety Report 15351982 (Version 1)
Quarter: 2018Q3

REPORT INFORMATION
  Report Type: Report from Study
  Country: BE (occurrence: BE)
  Receive Date: 20180905
  Receipt Date: 20180905
  Transmission Date: 20181010
  Serious: Yes (Other)
  Sender: FDA-Public Use
  Company Number: BE-PFIZER INC-2018352998

PATIENT
  Age: 85 Year
  Sex: Female
  Weight: 67.4 kg

DRUGS (4)
  1. BEVACIZUMAB. [Suspect]
     Active Substance: BEVACIZUMAB
     Dosage: 986 MG, EVERY 3 WEEKS (MOST RECENT DOSE PRIOR TO SAE 10JUN2015)
     Route: 042
  2. CARBOPLATIN. [Suspect]
     Active Substance: CARBOPLATIN
     Indication: OVARIAN CANCER
     Dosage: 1 UNK, EVERY 3 WEEKS (5 AUC MOST RECENT DOSE PRIOR SAE: 10JUN2015)
     Route: 042
     Dates: start: 20150522
  3. BEVACIZUMAB. [Suspect]
     Active Substance: BEVACIZUMAB
     Indication: OVARIAN CANCER
     Dosage: 1010 MG, EVERY 3 WEEKS
     Route: 042
     Dates: start: 20150522
  4. PACLITAXEL. [Suspect]
     Active Substance: PACLITAXEL
     Indication: OVARIAN CANCER
     Dosage: 175 MG/M2, EVERY 3 WEEKS (MOST RECENT DOSE PRIOR TO SAE: 10JUN2015)
     Route: 042
     Dates: start: 20150522

REACTIONS (5)
  - Peripheral sensory neuropathy [Unknown]
  - Diarrhoea [Not Recovered/Not Resolved]
  - Nasopharyngitis [Not Recovered/Not Resolved]
  - Constipation [Not Recovered/Not Resolved]
  - Hypertension [Unknown]

NARRATIVE: CASE EVENT DATE: 20150603
